APPROVED DRUG PRODUCT: METHOCARBAMOL
Active Ingredient: METHOCARBAMOL
Strength: 500MG
Dosage Form/Route: TABLET;ORAL
Application: A209312 | Product #001 | TE Code: AA
Applicant: GRANULES INDIA LTD
Approved: May 7, 2018 | RLD: No | RS: Yes | Type: RX